FAERS Safety Report 4588751-X (Version None)
Quarter: 2005Q1

REPORT INFORMATION
  Report Type: 
  Country: None (occurrence: None)
  Receive Date: 20050222
  Receipt Date: 20050214
  Transmission Date: 20050727
  Serious: Yes (Hospitalization)
  Sender: FDA-Public Use
  Company Number: PHBS2005AR02419

PATIENT
  Age: 70 Year
  Sex: Male

DRUGS (5)
  1. TEGRETOL [Suspect]
     Indication: NEURALGIA
     Dosage: 200 MG, BID
     Route: 065
     Dates: start: 20050116
  2. FOXCETINE [Concomitant]
     Dosage: 20 MG, BID
     Route: 065
  3. FERDROMAC [Concomitant]
     Dosage: 2 TABLETS/DAY
     Route: 048
  4. ATENOLOL [Concomitant]
     Dosage: 12.5 MG, BID
     Route: 065
  5. DOLOFRIX FORTE [Concomitant]
     Route: 065

REACTIONS (4)
  - COLON OPERATION [None]
  - DIZZINESS [None]
  - FATIGUE [None]
  - HYPERSOMNIA [None]
